APPROVED DRUG PRODUCT: KETOROLAC TROMETHAMINE
Active Ingredient: KETOROLAC TROMETHAMINE
Strength: 0.4%
Dosage Form/Route: SOLUTION/DROPS;OPHTHALMIC
Application: A205191 | Product #001
Applicant: EUGIA PHARMA SPECIALITIES LTD
Approved: Nov 15, 2018 | RLD: No | RS: No | Type: DISCN